FAERS Safety Report 25094373 (Version 2)
Quarter: 2025Q3

REPORT INFORMATION
  Report Type: Report from Study
  Country: US (occurrence: US)
  Receive Date: 20250319
  Receipt Date: 20250717
  Transmission Date: 20251021
  Serious: No
  Sender: SUNOVION
  Company Number: US-SUMITOMO PHARMA SWITZERLAND GMBH-2025SPA002162

PATIENT

DRUGS (1)
  1. ORGOVYX [Suspect]
     Active Substance: RELUGOLIX
     Indication: Prostate cancer
     Dosage: 120 MG, QD
     Route: 048
     Dates: start: 20241121

REACTIONS (7)
  - Sleep disorder [Unknown]
  - Appetite disorder [Unknown]
  - Decreased activity [Unknown]
  - Depression [Unknown]
  - Asthenia [Unknown]
  - Product use issue [Unknown]
  - Incorrect dose administered [Unknown]
